FAERS Safety Report 9578931 (Version 1)
Quarter: 2013Q4

REPORT INFORMATION
  Report Type: Spontaneous
  Country: US (occurrence: US)
  Receive Date: 20131001
  Receipt Date: 20131001
  Transmission Date: 20140711
  Serious: No
  Sender: FDA-Public Use
  Company Number: US-AMGEN-USASP2013016121

PATIENT
  Age: 69 Year
  Sex: Male

DRUGS (9)
  1. ENBREL [Suspect]
     Indication: PSORIATIC ARTHROPATHY
     Dosage: 50 MG, QWK
     Route: 058
     Dates: start: 201202
  2. NORCO [Concomitant]
     Indication: SPINAL COLUMN STENOSIS
     Dosage: UNK
  3. NORCO [Concomitant]
     Indication: SPINAL FRACTURE
  4. DEPAKOTE [Concomitant]
     Indication: CONVULSION
     Dosage: UNK
  5. PRIMIDONE [Concomitant]
     Indication: TREMOR
     Dosage: UNK
  6. SYMBYAX [Concomitant]
     Dosage: UNK
  7. AVALIDE [Concomitant]
     Dosage: UNK
  8. COUMADIN                           /00014802/ [Concomitant]
     Indication: DEEP VEIN THROMBOSIS
     Dosage: UNK
  9. COUMADIN                           /00014802/ [Concomitant]
     Indication: PULMONARY EMBOLISM

REACTIONS (1)
  - Influenza [Recovered/Resolved]
